FAERS Safety Report 8791610 (Version 5)
Quarter: 2012Q4

REPORT INFORMATION
  Report Type: 
  Country: US (occurrence: US)
  Receive Date: 20120918
  Receipt Date: 20121018
  Transmission Date: 20130627
  Serious: Yes (Hospitalization, Disabling)
  Sender: FDA-Public Use
  Company Number: US-JNJFOC-20120904535

PATIENT
  Age: 87 None
  Sex: Female
  Weight: 74.39 kg

DRUGS (3)
  1. XARELTO [Suspect]
     Indication: CEREBROVASCULAR ACCIDENT PROPHYLAXIS
     Route: 048
     Dates: end: 20120906
  2. XARELTO [Suspect]
     Indication: ATRIAL FIBRILLATION
     Route: 048
     Dates: end: 20120906
  3. DICLOFENAC GEL [Concomitant]
     Route: 061

REACTIONS (5)
  - Haemorrhage intracranial [Not Recovered/Not Resolved]
  - Hospitalisation [Unknown]
  - Haematocrit decreased [Recovering/Resolving]
  - Drug ineffective [Recovering/Resolving]
  - Platelet count decreased [Not Recovered/Not Resolved]
